FAERS Safety Report 23085190 (Version 1)
Quarter: 2023Q4

REPORT INFORMATION
  Report Type: Spontaneous
  Country: US (occurrence: None)
  Receive Date: 20231019
  Receipt Date: 20231019
  Transmission Date: 20240110
  Serious: Yes (Other)
  Sender: FDA-Public Use
  Company Number: None

PATIENT
  Age: 62 Year
  Sex: Female
  Weight: 64.35 kg

DRUGS (8)
  1. GLIPIZIDE [Suspect]
     Active Substance: GLIPIZIDE
     Indication: Diabetes mellitus
     Dosage: OTHER QUANTITY : 45 TABLET(S);?FREQUENCY : DAILY;?
     Route: 048
     Dates: start: 20231013, end: 20231017
  2. Armour Thyroid, [Concomitant]
  3. OMEPRAZOLE [Concomitant]
     Active Substance: OMEPRAZOLE
  4. Sucralfate (Carafate) [Concomitant]
  5. VITAMINS [Concomitant]
     Active Substance: VITAMINS
  6. VitD3 [Concomitant]
  7. VITAMIN B12 [Concomitant]
     Active Substance: CYANOCOBALAMIN
  8. Live Conscious Digestive Enzymes with Prebiotics [Concomitant]

REACTIONS (4)
  - Back pain [None]
  - Gastrointestinal disorder [None]
  - Vulvovaginal burning sensation [None]
  - Vulvovaginal dryness [None]

NARRATIVE: CASE EVENT DATE: 20231017
